FAERS Safety Report 20668744 (Version 2)
Quarter: 2022Q3

REPORT INFORMATION
  Report Type: Spontaneous
  Country: KR (occurrence: KR)
  Receive Date: 20220404
  Receipt Date: 20220702
  Transmission Date: 20221026
  Serious: Yes (Other)
  Sender: FDA-Public Use
  Company Number: KR-CELLTRION INC.-2022KR001658

PATIENT

DRUGS (2)
  1. INFLIXIMAB [Suspect]
     Active Substance: INFLIXIMAB
     Indication: Crohn^s disease
     Dosage: REMSIMA PEN INJECTION 120 MILLIGRAM
     Route: 058
     Dates: start: 20220210
  2. IMURAN [Concomitant]
     Active Substance: AZATHIOPRINE
     Dosage: 1 TAB, QD (ONCE A DAY), STARTED ABOUT 10 YEARS AGO AND ENDED ON 19 MAR 2022

REACTIONS (4)
  - SARS-CoV-2 test positive [Not Recovered/Not Resolved]
  - Injection site pain [Recovered/Resolved]
  - Injection site swelling [Not Recovered/Not Resolved]
  - Treatment delayed [Unknown]

NARRATIVE: CASE EVENT DATE: 20220210
